FAERS Safety Report 9690566 (Version 1)
Quarter: 2013Q4

REPORT INFORMATION
  Report Type: Spontaneous
  Country: SA (occurrence: None)
  Receive Date: 20131113
  Receipt Date: 20131113
  Transmission Date: 20140711
  Serious: Yes (Hospitalization)
  Sender: FDA-Public Use
  Company Number: METF20130013

PATIENT
  Age: 19 Year
  Sex: Male
  Weight: 99 kg

DRUGS (1)
  1. METFORMIN HYDROCHLORIDE [Suspect]
     Indication: TYPE 2 DIABETES MELLITUS
     Dosage: 2000MG, 2 IN 1 D, ORAL
     Route: 048

REACTIONS (2)
  - Dehydration [None]
  - Pancreatitis acute [None]
